FAERS Safety Report 6608533-4 (Version None)
Quarter: 2010Q1

REPORT INFORMATION
  Report Type: 
  Country: None (occurrence: None)
  Receive Date: 20100301
  Receipt Date: 20100218
  Transmission Date: 20100710
  Serious: Yes (Hospitalization)
  Sender: FDA-Public Use
  Company Number: JP-EISAI INC.-E3810-03545-SPO-JP

PATIENT
  Age: 76 Year
  Sex: Male
  Weight: 54 kg

DRUGS (10)
  1. PARIET (RABEPRAZOLE) [Suspect]
     Route: 048
     Dates: start: 20100216, end: 20100218
  2. IOMERON-350 [Suspect]
     Dosage: UNKNOWN
     Route: 013
     Dates: start: 20100217, end: 20100217
  3. CEFDINIR [Suspect]
     Route: 048
     Dates: start: 20100216, end: 20100218
  4. ASASURFAN [Concomitant]
     Dosage: UNKNOWN
     Route: 048
  5. RESTREAM [Concomitant]
     Dosage: UNKNOWN
     Route: 048
  6. TANATRIL [Concomitant]
     Indication: HYPERTENSION
     Dosage: UNKNOWN
     Route: 048
  7. URINORM [Concomitant]
     Dosage: UNKNOWN
  8. BUFFERIN [Concomitant]
     Route: 048
  9. SIGMART [Concomitant]
     Dosage: UNKNOWN
  10. SELBEX [Concomitant]
     Route: 048

REACTIONS (3)
  - RASH [None]
  - RASH PRURITIC [None]
  - RENAL IMPAIRMENT [None]
